FAERS Safety Report 23373824 (Version 1)
Quarter: 2024Q1

REPORT INFORMATION
  Report Type: Spontaneous
  Country: US (occurrence: US)
  Receive Date: 20240105
  Receipt Date: 20240105
  Transmission Date: 20240410
  Serious: Yes (Other)
  Sender: FDA-Public Use
  Company Number: US-COOPERSURGICAL, INC.-US-2023CPS001510

PATIENT
  Age: 25 Year
  Sex: Female
  Weight: 68.481 kg

DRUGS (2)
  1. PARAGARD T 380A [Suspect]
     Active Substance: COPPER
     Indication: Abnormal uterine bleeding
     Dosage: UNK
     Route: 015
     Dates: start: 20210922, end: 20230523
  2. BUPROPION [Concomitant]
     Active Substance: BUPROPION
     Indication: Product used for unknown indication
     Dosage: UNK UNK, UNK
     Route: 065

REACTIONS (5)
  - Embedded device [Recovered/Resolved]
  - Device issue [Unknown]
  - Vaginal discharge [Unknown]
  - Pelvic pain [Unknown]
  - Off label use [Unknown]

NARRATIVE: CASE EVENT DATE: 20210922
